FAERS Safety Report 8995863 (Version 3)
Quarter: 2013Q1

REPORT INFORMATION
  Report Type: Report from Study
  Country: DE (occurrence: DE)
  Receive Date: 20130103
  Receipt Date: 20130206
  Transmission Date: 20140127
  Serious: Yes (Hospitalization)
  Sender: FDA-Public Use
  Company Number: DE-JNJFOC-20121212529

PATIENT
  Age: 51 Year
  Sex: Female

DRUGS (7)
  1. REMICADE [Suspect]
     Indication: RHEUMATOID ARTHRITIS
     Route: 042
     Dates: start: 201003, end: 20120308
  2. ETANERCEPT [Concomitant]
     Indication: RHEUMATOID ARTHRITIS
     Dates: start: 201204
  3. PREDNISOLONE [Concomitant]
     Dates: start: 2000
  4. CALCIUM + D3 [Concomitant]
     Dates: start: 2000
  5. RAMIPRIL [Concomitant]
     Dates: start: 200709
  6. AMLODIPINE [Concomitant]
     Dates: start: 201105
  7. DEKRISTOL [Concomitant]
     Dates: start: 201101

REACTIONS (3)
  - Spondylitis [Unknown]
  - Back pain [Recovered/Resolved]
  - Rheumatoid arthritis [Unknown]
